FAERS Safety Report 13639633 (Version 1)
Quarter: 2017Q2

REPORT INFORMATION
  Report Type: Spontaneous
  Country: US (occurrence: US)
  Receive Date: 20170609
  Receipt Date: 20170609
  Transmission Date: 20170830
  Serious: Yes (Other)
  Sender: FDA-Public Use
  Company Number: US-ROCHE-1532949

PATIENT
  Sex: Female

DRUGS (6)
  1. KLONOPIN [Suspect]
     Active Substance: CLONAZEPAM
     Indication: TINNITUS
     Route: 065
     Dates: start: 201411
  2. KLONOPIN [Suspect]
     Active Substance: CLONAZEPAM
     Dosage: AT BED TIME
     Route: 065
  3. KLONOPIN [Suspect]
     Active Substance: CLONAZEPAM
     Indication: ANXIETY
     Dosage: NIGHTLY, PATIENT ON MEDICATION 20 YEARS.
     Route: 065
     Dates: start: 1993, end: 201405
  4. KLONOPIN [Suspect]
     Active Substance: CLONAZEPAM
     Route: 065
  5. HCTZ [Concomitant]
     Active Substance: HYDROCHLOROTHIAZIDE
     Route: 065
  6. KLONOPIN [Suspect]
     Active Substance: CLONAZEPAM
     Route: 065

REACTIONS (20)
  - Apparent death [Unknown]
  - Disturbance in attention [Unknown]
  - Malaise [Unknown]
  - Drug ineffective [Unknown]
  - Dysgeusia [Unknown]
  - Abasia [Unknown]
  - Fatigue [Unknown]
  - Poisoning [Unknown]
  - Insomnia [Unknown]
  - Feeling cold [Unknown]
  - Neck pain [Not Recovered/Not Resolved]
  - Arthralgia [Not Recovered/Not Resolved]
  - Myalgia [Unknown]
  - Dysgeusia [Not Recovered/Not Resolved]
  - Headache [Unknown]
  - Ill-defined disorder [Unknown]
  - Withdrawal syndrome [Unknown]
  - Fear [Not Recovered/Not Resolved]
  - Musculoskeletal stiffness [Unknown]
  - Hyperacusis [Not Recovered/Not Resolved]
